FAERS Safety Report 18018095 (Version 2)
Quarter: 2020Q3

REPORT INFORMATION
  Report Type: Report from Study
  Country: US (occurrence: US)
  Receive Date: 20200714
  Receipt Date: 20200716
  Transmission Date: 20201103
  Serious: Yes (Death, Other)
  Sender: FDA-Public Use
  Company Number: US-BIOGEN-2020BI00895313

PATIENT
  Sex: Female

DRUGS (1)
  1. TECFIDERA [Suspect]
     Active Substance: DIMETHYL FUMARATE
     Indication: MULTIPLE SCLEROSIS
     Route: 065
     Dates: start: 20140620

REACTIONS (7)
  - Sepsis [Fatal]
  - Cardiac failure congestive [Unknown]
  - Pneumonia aspiration [Unknown]
  - Acute respiratory failure [Fatal]
  - Pneumonia [Fatal]
  - Pulmonary mass [Unknown]
  - Pleural effusion [Fatal]
